FAERS Safety Report 24647745 (Version 1)
Quarter: 2024Q4

REPORT INFORMATION
  Report Type: Report from Study
  Country: US (occurrence: US)
  Receive Date: 20241121
  Receipt Date: 20241121
  Transmission Date: 20250115
  Serious: Yes (Other)
  Sender: CALLIDITAS THERAPEUTICS AB
  Company Number: US-Calliditas-2024CAL01780

PATIENT
  Age: 51 Year
  Sex: Female
  Weight: 99.3 kg

DRUGS (1)
  1. TARPEYO [Suspect]
     Active Substance: BUDESONIDE
     Indication: IgA nephropathy
     Route: 048
     Dates: start: 20230518

REACTIONS (5)
  - Urinary tract infection [Unknown]
  - Haemorrhage urinary tract [Unknown]
  - Diarrhoea [Recovered/Resolved]
  - Blood urine [Not Recovered/Not Resolved]
  - Intestinal prolapse [Not Recovered/Not Resolved]

NARRATIVE: CASE EVENT DATE: 20240801
